FAERS Safety Report 12820458 (Version 1)
Quarter: 2016Q4

REPORT INFORMATION
  Report Type: Spontaneous
  Country: US (occurrence: US)
  Receive Date: 20161006
  Receipt Date: 20161006
  Transmission Date: 20170207
  Serious: No
  Sender: FDA-Public Use
  Company Number: US-INDIVIOR LIMITED-INDV-089902-2016

PATIENT
  Sex: Male

DRUGS (2)
  1. SUBOXONE [Suspect]
     Active Substance: BUPRENORPHINE HYDROCHLORIDE\NALOXONE HYDROCHLORIDE
     Indication: DRUG DEPENDENCE
     Dosage: 8 MG, DAILY, FOR ABOUT 2 YEARS
     Route: 060
     Dates: start: 2008, end: 2010
  2. SUBOXONE [Suspect]
     Active Substance: BUPRENORPHINE HYDROCHLORIDE\NALOXONE HYDROCHLORIDE
     Indication: DRUG DEPENDENCE
     Dosage: 8 MG, QD
     Route: 060
     Dates: start: 2010

REACTIONS (4)
  - Dental caries [Not Recovered/Not Resolved]
  - Headache [Not Recovered/Not Resolved]
  - Oral pain [Not Recovered/Not Resolved]
  - Tooth impacted [Not Recovered/Not Resolved]

NARRATIVE: CASE EVENT DATE: 201510
